FAERS Safety Report 6707541-2 (Version None)
Quarter: 2010Q2

REPORT INFORMATION
  Report Type: 
  Country: None (occurrence: None)
  Receive Date: 20100503
  Receipt Date: 20100420
  Transmission Date: 20101027
  Serious: Yes (Other)
  Sender: FDA-Public Use
  Company Number: US-BAYER-201020016NA

PATIENT
  Age: 73 Year
  Sex: Female
  Weight: 64 kg

DRUGS (5)
  1. ULTRAVIST (PHARMACY BULK) [Suspect]
     Indication: COMPUTERISED TOMOGRAM ABDOMEN
     Dosage: TOTAL DAILY DOSE: 125 ML  UNIT DOSE: 500 ML
     Route: 042
     Dates: start: 20100420, end: 20100420
  2. PREDNISONE [Concomitant]
     Dosage: TOTAL DAILY DOSE: 100 MG
     Dates: start: 20100419, end: 20100419
  3. BENADRYL [Concomitant]
     Dosage: AS USED: 50 MG
     Dates: start: 20100420, end: 20100420
  4. ZANTAC [Concomitant]
     Dosage: AS USED: 150 MG
     Dates: start: 20100420, end: 20100420
  5. READI-CAT [Concomitant]
     Route: 048
     Dates: start: 20100420, end: 20100420

REACTIONS (2)
  - BLOOD PRESSURE INCREASED [None]
  - CHEST DISCOMFORT [None]
